FAERS Safety Report 6544088-0 (Version None)
Quarter: 2010Q1

REPORT INFORMATION
  Report Type: 
  Country: None (occurrence: None)
  Receive Date: 20100119
  Receipt Date: 20100119
  Transmission Date: 20100710
  Serious: Yes (Hospitalization)
  Sender: FDA-Public Use
  Company Number: None

PATIENT
  Age: 18 Year
  Sex: Male
  Weight: 68.0396 kg

DRUGS (2)
  1. TAMIFLU [Suspect]
     Indication: INFLUENZA
     Dosage: 75 MG. ONCE DAY PO
     Route: 048
     Dates: start: 20100112, end: 20100113
  2. TAMIFLU [Suspect]
     Indication: PROPHYLAXIS
     Dosage: 75 MG. ONCE DAY PO
     Route: 048
     Dates: start: 20100112, end: 20100113

REACTIONS (3)
  - ANXIETY [None]
  - FEELING ABNORMAL [None]
  - HYPERVENTILATION [None]
